FAERS Safety Report 5928532-5 (Version None)
Quarter: 2008Q4

REPORT INFORMATION
  Report Type: 
  Country: None (occurrence: None)
  Receive Date: 20081021
  Receipt Date: 20080929
  Transmission Date: 20090506
  Serious: Yes (Death, Life-Threatening)
  Sender: FDA-Public Use
  Company Number: CL002152008

PATIENT
  Age: 30 Year
  Sex: Male

DRUGS (5)
  1. CIPROFLOXACIN [Suspect]
     Indication: URINARY TRACT INFECTION
     Dosage: 1G/DAY ORAL
     Route: 048
  2. METHYLPREDNISOLONE 16MG TAB [Concomitant]
  3. PLASMA EXCHANGE [Concomitant]
  4. PLASMA INFUSION [Concomitant]
  5. GAMMAGLOBULINS [Concomitant]

REACTIONS (18)
  - ABDOMINAL PAIN [None]
  - CARDIAC FAILURE ACUTE [None]
  - COLD SWEAT [None]
  - CONFUSIONAL STATE [None]
  - EXTRAVASATION [None]
  - HAEMATURIA [None]
  - HAEMOLYTIC ANAEMIA [None]
  - HAEMORRHAGE [None]
  - HYPOPERFUSION [None]
  - JAUNDICE [None]
  - PETECHIAE [None]
  - PULMONARY HAEMORRHAGE [None]
  - PULMONARY OEDEMA [None]
  - PURPURA [None]
  - RED BLOOD CELL SCHISTOCYTES PRESENT [None]
  - THROMBOCYTOPENIA [None]
  - URINARY TRACT INFECTION [None]
  - VOMITING [None]
